FAERS Safety Report 9681360 (Version 1)
Quarter: 2013Q4

REPORT INFORMATION
  Report Type: Spontaneous
  Country: US (occurrence: None)
  Receive Date: 20131108
  Receipt Date: 20131108
  Transmission Date: 20140711
  Serious: Yes (Life-Threatening, Hospitalization, Disabling, Other)
  Sender: FDA-Public Use
  Company Number: None

PATIENT
  Age: 41 Year
  Sex: Male
  Weight: 106.6 kg

DRUGS (1)
  1. XARELTO [Suspect]
     Indication: ANTICOAGULANT THERAPY
     Dosage: 1 TAB
     Route: 048
     Dates: start: 20130430

REACTIONS (12)
  - Pain in extremity [None]
  - Abdominal pain [None]
  - Asthenia [None]
  - Dizziness [None]
  - Pain [None]
  - Hyperhidrosis [None]
  - Blood pressure decreased [None]
  - Anaemia [None]
  - Thrombosis [None]
  - Intra-abdominal haemorrhage [None]
  - Haemorrhage [None]
  - Oxygen saturation decreased [None]
